FAERS Safety Report 8759441 (Version 8)
Quarter: 2015Q2

REPORT INFORMATION
  Report Type: Spontaneous
  Country: US (occurrence: US)
  Receive Date: 20120829
  Receipt Date: 20150430
  Transmission Date: 20150821
  Serious: Yes (Hospitalization, Disabling, Other)
  Sender: FDA-Public Use
  Company Number: US-009507513-1205USA04991

PATIENT
  Sex: Female
  Weight: 56.24 kg

DRUGS (5)
  1. VITAMINS (UNSPECIFIED) [Concomitant]
     Active Substance: VITAMINS
     Indication: ROUTINE HEALTH MAINTENANCE
     Dosage: 1 DF, QD
     Dates: start: 1998
  2. FOSAMAX PLUS D [Suspect]
     Active Substance: ALENDRONATE SODIUM\CHOLECALCIFEROL
     Indication: OSTEOPENIA
     Dosage: 70/2800 MG QW
     Route: 048
     Dates: start: 200701, end: 200912
  3. CALCIUM (UNSPECIFIED) [Concomitant]
     Active Substance: CALCIUM
     Indication: ROUTINE HEALTH MAINTENANCE
     Dosage: 1800 MG, QD
     Dates: start: 1998
  4. FOSAMAX [Suspect]
     Active Substance: ALENDRONATE SODIUM
     Indication: OSTEOPENIA
     Dosage: 70 MG, QW
     Route: 048
     Dates: start: 199809, end: 200701
  5. FOSAMAX [Suspect]
     Active Substance: ALENDRONATE SODIUM
     Dosage: 10 MG, UNK
     Route: 048
     Dates: start: 20000426

REACTIONS (40)
  - Femur fracture [Not Recovered/Not Resolved]
  - Bone marrow oedema [Unknown]
  - Back pain [Not Recovered/Not Resolved]
  - Gastrointestinal disorder [Unknown]
  - Back pain [Unknown]
  - Foot fracture [Unknown]
  - Upper limb fracture [Unknown]
  - Appendicectomy [Unknown]
  - Chest pain [Recovered/Resolved]
  - Joint injury [Recovering/Resolving]
  - Femur fracture [Unknown]
  - Osteonecrosis of jaw [Not Recovered/Not Resolved]
  - Pain in extremity [Unknown]
  - Bone pain [Unknown]
  - Wrist fracture [Unknown]
  - Open reduction of fracture [Unknown]
  - Osteoporosis [Not Recovered/Not Resolved]
  - Fall [Unknown]
  - Emphysema [Unknown]
  - Radius fracture [Unknown]
  - Femur fracture [Not Recovered/Not Resolved]
  - Dyspepsia [Not Recovered/Not Resolved]
  - Fracture [Unknown]
  - Low turnover osteopathy [Unknown]
  - Musculoskeletal pain [Not Recovered/Not Resolved]
  - Blister [Unknown]
  - Intervertebral disc degeneration [Unknown]
  - Muscle spasms [Unknown]
  - Haematocrit abnormal [Unknown]
  - Osteoporosis [Unknown]
  - Inappropriate schedule of drug administration [Unknown]
  - Blood calcium decreased [Unknown]
  - Foot fracture [Recovering/Resolving]
  - Foot fracture [Unknown]
  - Ligament sprain [Unknown]
  - Oophorectomy [Unknown]
  - Osteoma [Unknown]
  - Overdose [Unknown]
  - Dermatitis contact [Recovering/Resolving]
  - Pain in extremity [Unknown]

NARRATIVE: CASE EVENT DATE: 1998
